FAERS Safety Report 20222636 (Version 2)
Quarter: 2022Q1

REPORT INFORMATION
  Report Type: Spontaneous
  Country: US (occurrence: US)
  Receive Date: 20211223
  Receipt Date: 20220105
  Transmission Date: 20220423
  Serious: Yes (Hospitalization)
  Sender: FDA-Public Use
  Company Number: US-TEVA-2021-US-1989694

PATIENT
  Age: 49 Year
  Sex: Female

DRUGS (7)
  1. FLUOROURACIL [Suspect]
     Active Substance: FLUOROURACIL
     Indication: Medullary thyroid cancer
     Route: 040
     Dates: start: 200803
  2. FLUOROURACIL [Suspect]
     Active Substance: FLUOROURACIL
     Dosage: OVER 46 HOURS
     Route: 041
     Dates: start: 200803, end: 200807
  3. OXALIPLATIN [Suspect]
     Active Substance: OXALIPLATIN
     Indication: Medullary thyroid cancer
     Route: 065
     Dates: start: 200803, end: 200807
  4. LEUCOVORIN [Suspect]
     Active Substance: LEUCOVORIN
     Indication: Medullary thyroid cancer
     Route: 065
     Dates: start: 200803, end: 200807
  5. SUNITINIB [Suspect]
     Active Substance: SUNITINIB
     Indication: Medullary thyroid cancer
     Dosage: 35.5 GRAM DAILY; FOR 4 WEEKS FOLLOWED BY A 2 WEEK REST PERIOD
     Route: 065
     Dates: start: 200803, end: 200912
  6. SORAFENIB [Suspect]
     Active Substance: SORAFENIB
     Indication: Medullary thyroid cancer
     Route: 065
     Dates: start: 201002
  7. SORAFENIB [Suspect]
     Active Substance: SORAFENIB
     Dosage: 800 MILLIGRAM DAILY;
     Route: 065
     Dates: start: 2010

REACTIONS (6)
  - Pseudocirrhosis [Unknown]
  - Drug ineffective [Unknown]
  - Pleural effusion [Unknown]
  - Ascites [Unknown]
  - Portal hypertension [Unknown]
  - Portal hypertensive gastropathy [Unknown]

NARRATIVE: CASE EVENT DATE: 20091101
